FAERS Safety Report 17853194 (Version 1)
Quarter: 2020Q2

REPORT INFORMATION
  Report Type: Spontaneous
  Country: IL (occurrence: IL)
  Receive Date: 20200603
  Receipt Date: 20200603
  Transmission Date: 20200714
  Serious: Yes (Hospitalization)
  Sender: FDA-Public Use
  Company Number: IL-DEXPHARM-20200388

PATIENT
  Age: 86 Year
  Sex: Female

DRUGS (4)
  1. MONOCORD 40 [Suspect]
     Active Substance: ISOSORBIDE MONONITRATE
     Indication: PALPITATIONS
     Dates: end: 202005
  2. MONOCORD [Suspect]
     Active Substance: ISOSORBIDE MONONITRATE
     Indication: CHEST PAIN
     Dates: start: 202005
  3. MONOCORD 40 [Suspect]
     Active Substance: ISOSORBIDE MONONITRATE
     Indication: CHEST PAIN
     Dates: end: 202005
  4. MONOCORD [Suspect]
     Active Substance: ISOSORBIDE MONONITRATE
     Indication: PALPITATIONS
     Dates: start: 202005

REACTIONS (2)
  - Loss of consciousness [Unknown]
  - Headache [Unknown]
